FAERS Safety Report 25318392 (Version 1)
Quarter: 2025Q2

REPORT INFORMATION
  Report Type: Spontaneous
  Country: US (occurrence: US)
  Receive Date: 20250515
  Receipt Date: 20250515
  Transmission Date: 20250717
  Serious: No
  Sender: PFIZER
  Company Number: US-PFIZER INC-PV202500025013

PATIENT
  Age: 20 Year
  Sex: Female

DRUGS (1)
  1. XELJANZ XR [Suspect]
     Active Substance: TOFACITINIB CITRATE
     Indication: Psoriatic arthropathy
     Dosage: 11 MG, 1X/DAY
     Route: 048
     Dates: start: 2024

REACTIONS (5)
  - Product dose omission issue [Unknown]
  - Incorrect dose administered [Unknown]
  - Drug ineffective [Unknown]
  - Discouragement [Unknown]
  - Depressed mood [Unknown]
